FAERS Safety Report 18936591 (Version 1)
Quarter: 2021Q1

REPORT INFORMATION
  Report Type: Spontaneous
  Country: FR (occurrence: FR)
  Receive Date: 20210225
  Receipt Date: 20210225
  Transmission Date: 20210420
  Serious: Yes (Other)
  Sender: FDA-Public Use
  Company Number: FR-TEVA-2021-FR-1882720

PATIENT
  Age: 44 Year
  Sex: Male

DRUGS (1)
  1. DOXYCYCLINE BASE [Suspect]
     Active Substance: DOXYCYCLINE
     Indication: ROSACEA
     Dosage: 100MILLIGRAM
     Route: 048
     Dates: start: 20210125, end: 20210126

REACTIONS (2)
  - Dizziness [Recovered/Resolved]
  - Nausea [Recovered/Resolved]

NARRATIVE: CASE EVENT DATE: 20210126
